FAERS Safety Report 8348905-3 (Version None)
Quarter: 2012Q2

REPORT INFORMATION
  Report Type: 
  Country: None (occurrence: None)
  Receive Date: 20120508
  Receipt Date: 20120423
  Transmission Date: 20120825
  Serious: Yes (Death, Hospitalization)
  Sender: FDA-Public Use
  Company Number: 2012040152

PATIENT
  Age: 51 Year
  Sex: Female

DRUGS (2)
  1. CARISOPRODOL (CARISOPRODOL) [Suspect]
  2. CLONAZEPAM [Suspect]

REACTIONS (13)
  - PAIN [None]
  - HEPATIC FIBROSIS [None]
  - ASPIRATION [None]
  - DEPRESSED LEVEL OF CONSCIOUSNESS [None]
  - PNEUMONIA ASPIRATION [None]
  - BRONCHOPNEUMONIA [None]
  - INTENTIONAL OVERDOSE [None]
  - TACHYPNOEA [None]
  - SOFT TISSUE HAEMORRHAGE [None]
  - HEPATOMEGALY [None]
  - UNRESPONSIVE TO STIMULI [None]
  - HYPERHIDROSIS [None]
  - URINARY BLADDER RUPTURE [None]
